FAERS Safety Report 6541635-X (Version None)
Quarter: 2010Q1

REPORT INFORMATION
  Report Type: 
  Country: None (occurrence: None)
  Receive Date: 20100119
  Receipt Date: 20100111
  Transmission Date: 20100710
  Serious: Yes (Other)
  Sender: FDA-Public Use
  Company Number: CA-JNJFOC-20100104089

PATIENT
  Sex: Female
  Weight: 82.5 kg

DRUGS (8)
  1. REMICADE [Suspect]
     Indication: RHEUMATOID ARTHRITIS
     Route: 042
  2. REMICADE [Suspect]
     Route: 042
  3. REMICADE [Suspect]
     Route: 042
  4. ZOPICLONE [Concomitant]
  5. LORAZEPAM [Concomitant]
  6. HYDROXYCHLOROQUINE SULFATE [Concomitant]
  7. ALENDRONATE SODIUM [Concomitant]
  8. PREDNISONE [Concomitant]

REACTIONS (1)
  - UPPER EXTREMITY MASS [None]
